FAERS Safety Report 12072715 (Version 3)
Quarter: 2016Q1

REPORT INFORMATION
  Report Type: Spontaneous
  Country: US (occurrence: US)
  Receive Date: 20160212
  Receipt Date: 20160330
  Transmission Date: 20160526
  Serious: Yes (Other)
  Sender: FDA-Public Use
  Company Number: US-JNJFOC-20160205146

PATIENT
  Age: 68 Year
  Sex: Female
  Weight: 90.72 kg

DRUGS (30)
  1. INVOKANA [Suspect]
     Active Substance: CANAGLIFLOZIN
     Indication: DIABETES MELLITUS
     Dosage: IN THE MORNING
     Route: 048
     Dates: start: 20160126, end: 20160203
  2. TRAMADOL. [Concomitant]
     Active Substance: TRAMADOL
     Indication: PAIN
     Route: 048
  3. CALCIUM [Concomitant]
     Active Substance: CALCIUM
     Route: 065
  4. CELEBREX [Concomitant]
     Active Substance: CELECOXIB
     Indication: ARTHRITIS
     Dosage: IN THE MORNING
     Route: 048
  5. DEXILANT [Concomitant]
     Active Substance: DEXLANSOPRAZOLE
     Indication: GASTROOESOPHAGEAL REFLUX DISEASE
     Dosage: IN THE MORNING
     Route: 048
     Dates: start: 2013
  6. DEXILANT [Concomitant]
     Active Substance: DEXLANSOPRAZOLE
     Indication: GASTRITIS
     Dosage: IN THE MORNING
     Route: 048
     Dates: start: 2013
  7. DEXILANT [Concomitant]
     Active Substance: DEXLANSOPRAZOLE
     Indication: ULCER
     Dosage: IN THE MORNING
     Route: 048
     Dates: start: 2013
  8. VITAMIN E [Concomitant]
     Active Substance: .ALPHA.-TOCOPHEROL
     Route: 065
  9. LORAZEPAM. [Concomitant]
     Active Substance: LORAZEPAM
     Indication: ANXIETY
     Dosage: AT NIGHT TO SLEEP
     Route: 048
  10. VALTREX [Concomitant]
     Active Substance: VALACYCLOVIR HYDROCHLORIDE
     Indication: HERPES VIRUS INFECTION
     Route: 048
  11. CARAFATE [Concomitant]
     Active Substance: SUCRALFATE
     Indication: HYPERCHLORHYDRIA
     Dosage: AT NIGHT
     Route: 048
  12. BACLOFEN. [Concomitant]
     Active Substance: BACLOFEN
     Indication: PAIN
     Dosage: AT NIGHT TO SLEEP
     Route: 048
  13. SOY PROTEIN [Concomitant]
     Active Substance: SOY PROTEIN
     Route: 065
  14. LORAZEPAM. [Concomitant]
     Active Substance: LORAZEPAM
     Indication: INSOMNIA
     Dosage: AT NIGHT TO SLEEP
     Route: 048
  15. DEXILANT [Concomitant]
     Active Substance: DEXLANSOPRAZOLE
     Indication: HYPERCHLORHYDRIA
     Dosage: IN THE MORNING
     Route: 048
     Dates: start: 2013
  16. SINGULAIR [Concomitant]
     Active Substance: MONTELUKAST SODIUM
     Indication: ASTHMA
     Route: 048
  17. GLUCOSAMIN PLUS CHONDROITIN [Concomitant]
     Route: 065
  18. SIMVASTATIN. [Concomitant]
     Active Substance: SIMVASTATIN
     Indication: BLOOD CHOLESTEROL INCREASED
     Route: 048
  19. LORATADINE. [Concomitant]
     Active Substance: LORATADINE
     Dosage: IN THE MORNING
     Route: 065
  20. ALBUTEROL. [Concomitant]
     Active Substance: ALBUTEROL
     Indication: ASTHMA
     Dosage: 2 PUFFS TWICE A DAY
     Route: 065
  21. MAGNESIUM [Concomitant]
     Active Substance: MAGNESIUM
     Route: 065
  22. MSM [Concomitant]
     Active Substance: DIMETHYL SULFONE
     Route: 065
  23. LECITHIN [Concomitant]
     Active Substance: LECITHIN
     Route: 065
  24. COD LIVER OIL [Concomitant]
     Active Substance: COD LIVER OIL
     Dosage: FOR HAIR AND SKIN
     Route: 065
  25. MULTIVITAMINS [Concomitant]
     Active Substance: VITAMINS
     Route: 065
  26. LEVOTHYROXINE. [Concomitant]
     Active Substance: LEVOTHYROXINE
     Indication: HYPOTHYROIDISM
     Dosage: MORNING ONLY
     Route: 048
  27. LEVOTHYROXINE. [Concomitant]
     Active Substance: LEVOTHYROXINE
     Indication: HYPOTHYROIDISM
     Dosage: IN THE MORNING
     Route: 048
     Dates: start: 2010
  28. RESTORIL [Concomitant]
     Active Substance: TEMAZEPAM
     Indication: SLEEP DISORDER THERAPY
     Dosage: AT NIGHT
     Route: 048
     Dates: start: 2014
  29. ACTONEL [Concomitant]
     Active Substance: RISEDRONATE SODIUM
     Indication: BONE DISORDER
     Route: 048
  30. VITAMIN B [Concomitant]
     Active Substance: VITAMIN B
     Dosage: DOSE: 100 (UNITS UNSPECIFIED)
     Route: 065

REACTIONS (19)
  - Hepatic pain [Recovering/Resolving]
  - Abdominal pain upper [Recovering/Resolving]
  - Blood glucose decreased [Recovering/Resolving]
  - Dizziness [Recovering/Resolving]
  - Underdose [Unknown]
  - Chest pain [Recovering/Resolving]
  - Influenza like illness [Recovering/Resolving]
  - Respiratory tract congestion [Recovering/Resolving]
  - Vision blurred [Recovering/Resolving]
  - Somnolence [Recovering/Resolving]
  - Pain in extremity [Recovering/Resolving]
  - Abnormal loss of weight [Recovering/Resolving]
  - Feeling hot [Recovering/Resolving]
  - Nasopharyngitis [Recovering/Resolving]
  - Arthralgia [Recovering/Resolving]
  - Urticaria [Recovering/Resolving]
  - Wrong technique in product usage process [Unknown]
  - Malaise [Recovering/Resolving]
  - Throat irritation [Recovering/Resolving]

NARRATIVE: CASE EVENT DATE: 201601
